FAERS Safety Report 10886457 (Version 1)
Quarter: 2015Q1

REPORT INFORMATION
  Report Type: Spontaneous
  Country: US (occurrence: None)
  Receive Date: 20150227
  Receipt Date: 20150227
  Transmission Date: 20150721
  Serious: Yes (Hospitalization)
  Sender: FDA-Public Use
  Company Number: LRN2629128

PATIENT
  Age: 60 Year
  Sex: Female
  Weight: 92.99 kg

DRUGS (5)
  1. RANIBIZUMAB [Suspect]
     Active Substance: RANIBIZUMAB
     Indication: DIABETIC RETINAL OEDEMA
     Dosage: 0.05OC, INTRAVITREAL
     Dates: start: 20141212
  2. NOVOLOG [Concomitant]
     Active Substance: INSULIN ASPART
  3. GABAPENTIN. [Concomitant]
     Active Substance: GABAPENTIN
  4. LANTUS [Concomitant]
     Active Substance: INSULIN GLARGINE
  5. PROTOMIX [Concomitant]

REACTIONS (5)
  - Vomiting [None]
  - Malaise [None]
  - Headache [None]
  - Diabetic ketoacidosis [None]
  - Diarrhoea [None]

NARRATIVE: CASE EVENT DATE: 20141222
